FAERS Safety Report 4977408-9 (Version None)
Quarter: 2006Q2

REPORT INFORMATION
  Report Type: 
  Country: None (occurrence: None)
  Receive Date: 20060411
  Receipt Date: 20060407
  Transmission Date: 20061013
  Serious: Yes (Life-Threatening, Hospitalization)
  Sender: FDA-Public Use
  Company Number: 2004-123237-NL

PATIENT
  Age: 81 Year
  Sex: Male

DRUGS (3)
  1. MIRTAZAPINE [Suspect]
     Indication: DEPRESSION
     Dosage: SEE IMAGE
     Route: 048
     Dates: start: 20041014, end: 20041210
  2. MIRTAZAPINE [Suspect]
     Indication: DEPRESSION
     Dosage: SEE IMAGE
     Route: 048
     Dates: start: 20041112, end: 20041210
  3. LATANOPROST [Concomitant]

REACTIONS (4)
  - AGRANULOCYTOSIS [None]
  - BLOOD CREATININE INCREASED [None]
  - CELLULITIS [None]
  - FEBRILE NEUTROPENIA [None]
